FAERS Safety Report 19884241 (Version 1)
Quarter: 2021Q3

REPORT INFORMATION
  Report Type: Spontaneous
  Country: GB (occurrence: GB)
  Receive Date: 20210927
  Receipt Date: 20210927
  Transmission Date: 20211014
  Serious: Yes (Other)
  Sender: FDA-Public Use
  Company Number: GB-ORGANON-O2109GBR001765

PATIENT
  Age: 3 Year
  Sex: Male

DRUGS (2)
  1. MONTELUKAST SODIUM. [Suspect]
     Active Substance: MONTELUKAST SODIUM
     Indication: SLEEP APNOEA SYNDROME
     Dosage: 4 MILLIGRAM
     Dates: start: 20200612, end: 20210319
  2. FLIXONASE [Concomitant]
     Active Substance: FLUTICASONE PROPIONATE
     Indication: TONSILLAR HYPERTROPHY
     Dosage: EACH NOSTRIL
     Route: 045
     Dates: start: 20200612

REACTIONS (3)
  - Anger [Recovered/Resolved]
  - Aggression [Recovered/Resolved]
  - Behaviour disorder [Recovered/Resolved]
